FAERS Safety Report 21302147 (Version 2)
Quarter: 2022Q3

REPORT INFORMATION
  Report Type: Spontaneous
  Country: US (occurrence: None)
  Receive Date: 20220907
  Receipt Date: 20220919
  Transmission Date: 20221027
  Serious: No
  Sender: FDA-Public Use
  Company Number: 2022A281499

PATIENT
  Sex: Female
  Weight: 50.8 kg

DRUGS (1)
  1. FASENRA [Suspect]
     Active Substance: BENRALIZUMAB
     Indication: Asthma
     Dosage: 30MG/ML EVERY EIGHT WEEKS
     Route: 058
     Dates: start: 202107

REACTIONS (3)
  - Paraesthesia [Not Recovered/Not Resolved]
  - Grip strength decreased [Unknown]
  - Dysphonia [Unknown]
